FAERS Safety Report 10390107 (Version 2)
Quarter: 2014Q3

REPORT INFORMATION
  Report Type: Spontaneous
  Country: US (occurrence: None)
  Receive Date: 20140814
  Receipt Date: 20140827
  Transmission Date: 20150326
  Serious: Yes (Death)
  Sender: FDA-Public Use
  Company Number: 2472876

PATIENT
  Sex: Male
  Weight: 95.45 kg

DRUGS (5)
  1. BUPIVACAINE HCL [Suspect]
     Active Substance: BUPIVACAINE HYDROCHLORIDE
     Indication: NERVE BLOCK
     Dosage: 1625MG IN 650 ML, 5ML/HOUR
     Dates: start: 20140711, end: 20140711
  2. DILAUDID [Concomitant]
     Active Substance: HYDROMORPHONE HYDROCHLORIDE
  3. SUCCINYLCHOLINE [Concomitant]
     Active Substance: SUCCINYLCHOLINE
  4. (PROPOFOL) INTUBATION (ENDOTRACHEAL INTUBATION) [Concomitant]
  5. ATIVAN [Concomitant]
     Active Substance: LORAZEPAM

REACTIONS (8)
  - Cardio-respiratory arrest [None]
  - Sinus tachycardia [None]
  - Device issue [None]
  - Accidental overdose [None]
  - Sinus bradycardia [None]
  - Pulseless electrical activity [None]
  - Incorrect drug administration rate [None]
  - Device malfunction [None]

NARRATIVE: CASE EVENT DATE: 20140711
